FAERS Safety Report 20427076 (Version 2)
Quarter: 2022Q1

REPORT INFORMATION
  Report Type: Spontaneous
  Country: JP (occurrence: JP)
  Receive Date: 20220204
  Receipt Date: 20220221
  Transmission Date: 20220423
  Serious: Yes (Hospitalization)
  Sender: FDA-Public Use
  Company Number: JP-DSJP-DSJ-2022-103108

PATIENT
  Age: 70 Year
  Sex: Female

DRUGS (1)
  1. DENOSUMAB [Suspect]
     Active Substance: DENOSUMAB
     Indication: Metastases to bone
     Dosage: UNK
     Route: 065

REACTIONS (2)
  - COVID-19 [Not Recovered/Not Resolved]
  - Pyrexia [Not Recovered/Not Resolved]
